FAERS Safety Report 21381747 (Version 1)
Quarter: 2022Q3

REPORT INFORMATION
  Report Type: Spontaneous
  Country: US (occurrence: None)
  Receive Date: 20220926
  Receipt Date: 20220926
  Transmission Date: 20221026
  Serious: Yes (Other)
  Sender: FDA-Public Use
  Company Number: None

PATIENT
  Sex: 0

DRUGS (1)
  1. BOTOX [Suspect]
     Active Substance: ONABOTULINUMTOXINA
     Route: 058

REACTIONS (4)
  - Product counterfeit [None]
  - Drug ineffective [None]
  - Headache [None]
  - Rash [None]

NARRATIVE: CASE EVENT DATE: 20220816
